FAERS Safety Report 21035252 (Version 2)
Quarter: 2022Q3

REPORT INFORMATION
  Report Type: Spontaneous
  Country: US (occurrence: US)
  Receive Date: 20220701
  Receipt Date: 20220705
  Transmission Date: 20221027
  Serious: Yes (Hospitalization)
  Sender: FDA-Public Use
  Company Number: US-ALLERGAN-2221261US

PATIENT
  Sex: Male

DRUGS (2)
  1. LEXAPRO [Suspect]
     Active Substance: ESCITALOPRAM OXALATE
     Indication: Depression
     Dosage: 10 MG, QD
     Route: 048
  2. LEXAPRO [Suspect]
     Active Substance: ESCITALOPRAM OXALATE
     Indication: Depression
     Dosage: 5 MG, QOD
     Route: 048

REACTIONS (10)
  - Fear [Recovering/Resolving]
  - Mental disorder [Recovering/Resolving]
  - Hallucination [Recovering/Resolving]
  - Depression [Recovering/Resolving]
  - Thinking abnormal [Recovering/Resolving]
  - Affect lability [Recovering/Resolving]
  - Confusional state [Recovering/Resolving]
  - Intentional product use issue [Unknown]
  - Therapy interrupted [Unknown]
  - Alopecia [Recovering/Resolving]

NARRATIVE: CASE EVENT DATE: 20220101
